FAERS Safety Report 15407011 (Version 1)
Quarter: 2018Q3

REPORT INFORMATION
  Report Type: Spontaneous
  Country: US (occurrence: US)
  Receive Date: 20180913
  Receipt Date: 20180913
  Transmission Date: 20181010
  Serious: Yes (Hospitalization)
  Sender: FDA-Public Use
  Company Number: None

PATIENT
  Sex: Female
  Weight: 43.5 kg

DRUGS (2)
  1. CARBOPLATIN. [Suspect]
     Active Substance: CARBOPLATIN
     Dates: end: 20180611
  2. TAXOL [Suspect]
     Active Substance: PACLITAXEL
     Dates: end: 20180611

REACTIONS (2)
  - Radiation pneumonitis [None]
  - Acute respiratory failure [None]

NARRATIVE: CASE EVENT DATE: 20180719
